FAERS Safety Report 17803378 (Version 1)
Quarter: 2020Q2

REPORT INFORMATION
  Report Type: Spontaneous
  Country: US (occurrence: US)
  Receive Date: 20200519
  Receipt Date: 20200519
  Transmission Date: 20200714
  Serious: No
  Sender: FDA-Public Use
  Company Number: US-PFIZER INC-2020196863

PATIENT
  Age: 84 Year
  Sex: Female
  Weight: 86.18 kg

DRUGS (1)
  1. ADVIL [Suspect]
     Active Substance: IBUPROFEN
     Indication: PAIN
     Dosage: 2 DF [200MG, TWO CAPLETS BY MOUTH]
     Route: 048

REACTIONS (4)
  - Product colour issue [Unknown]
  - Pruritus [Unknown]
  - Rash erythematous [Unknown]
  - Poor quality product administered [Unknown]

NARRATIVE: CASE EVENT DATE: 20200513
